FAERS Safety Report 25344406 (Version 3)
Quarter: 2025Q3

REPORT INFORMATION
  Report Type: Spontaneous
  Country: JP (occurrence: JP)
  Receive Date: 20250521
  Receipt Date: 20250717
  Transmission Date: 20251020
  Serious: Yes (Hospitalization)
  Sender: MERCK SHARP & DOHME LLC
  Company Number: JP-009507513-2286219

PATIENT
  Age: 60 Year
  Sex: Female
  Weight: 51 kg

DRUGS (5)
  1. KEYTRUDA [Suspect]
     Active Substance: PEMBROLIZUMAB
     Indication: Uterine cancer
     Dates: start: 20240910, end: 20250305
  2. Daikenchuto Tsumura 2.5g (100) [Concomitant]
     Route: 048
     Dates: start: 20250319, end: 20250326
  3. CALONAL tablets 500 [Concomitant]
     Route: 048
  4. LENVIMA [Concomitant]
     Active Substance: LENVATINIB
     Indication: Uterine cancer
     Dates: start: 20240910, end: 20241023
  5. PROSTANDIN OINTMENT0.003% [Concomitant]
     Dates: start: 20250131

REACTIONS (4)
  - Immune-mediated hepatic disorder [Recovering/Resolving]
  - Stasis dermatitis [Unknown]
  - Lymphoedema [Unknown]
  - Skin ulcer [Recovering/Resolving]

NARRATIVE: CASE EVENT DATE: 20241016
